FAERS Safety Report 7064401-8 (Version None)
Quarter: 2010Q4

REPORT INFORMATION
  Report Type: 
  Country: None (occurrence: None)
  Receive Date: 20101027
  Receipt Date: 20101013
  Transmission Date: 20110411
  Serious: Yes (Other)
  Sender: FDA-Public Use
  Company Number: PHHY2010CA69935

PATIENT
  Sex: Male

DRUGS (4)
  1. CLOZARIL [Suspect]
     Dosage: UNK
     Dates: start: 20061023
  2. PROPRANOLOL [Concomitant]
  3. VALPROIC ACID [Concomitant]
  4. RISPERDAL [Concomitant]

REACTIONS (2)
  - OSTEONECROSIS [None]
  - PAIN [None]
